FAERS Safety Report 12786101 (Version 1)
Quarter: 2016Q3

REPORT INFORMATION
  Report Type: Spontaneous
  Country: PE (occurrence: PE)
  Receive Date: 20160927
  Receipt Date: 20160927
  Transmission Date: 20161109
  Serious: Yes (Other)
  Sender: FDA-Public Use
  Company Number: PE-PFIZER INC-2016435959

PATIENT
  Age: 77 Year
  Sex: Female

DRUGS (2)
  1. XALATAN [Suspect]
     Active Substance: LATANOPROST
     Dosage: 1 DROP ON EACH AL DAILY
  2. XALATAN [Suspect]
     Active Substance: LATANOPROST
     Dosage: 1 DROP UPON WAKING UP, AND BEFORE SLEEPING
     Route: 047

REACTIONS (2)
  - Cataract [Unknown]
  - Product use issue [Unknown]
